FAERS Safety Report 8359767-2 (Version None)
Quarter: 2012Q2

REPORT INFORMATION
  Report Type: 
  Country: None (occurrence: None)
  Receive Date: 20120515
  Receipt Date: 20120508
  Transmission Date: 20120825
  Serious: Yes (Hospitalization, Other)
  Sender: FDA-Public Use
  Company Number: PHHY2012BR040536

PATIENT
  Sex: Male
  Weight: 110 kg

DRUGS (2)
  1. EXFORGE [Suspect]
     Dosage: 1 DF (80/5MG) DAILY
  2. DIABINESE [Concomitant]
     Indication: DIABETES MELLITUS
     Dosage: 1 DF, DAILY
     Route: 048

REACTIONS (4)
  - GAIT DISTURBANCE [None]
  - FEMUR FRACTURE [None]
  - MOTOR DYSFUNCTION [None]
  - OEDEMA PERIPHERAL [None]
